FAERS Safety Report 18567833 (Version 1)
Quarter: 2020Q4

REPORT INFORMATION
  Report Type: Report from Study
  Country: US (occurrence: US)
  Receive Date: 20201202
  Receipt Date: 20201202
  Transmission Date: 20210114
  Serious: Yes (Death, Other)
  Sender: FDA-Public Use
  Company Number: US-GILEAD-2020-0506600

PATIENT
  Age: 68 Year
  Sex: Female

DRUGS (3)
  1. TADALAFIL. [Concomitant]
     Active Substance: TADALAFIL
  2. NIFEDIPINE. [Concomitant]
     Active Substance: NIFEDIPINE
  3. AMBRISENTAN [Suspect]
     Active Substance: AMBRISENTAN
     Indication: PULMONARY ARTERIAL HYPERTENSION
     Dosage: 5 MG, QD
     Route: 065
     Dates: start: 20200316

REACTIONS (1)
  - Death [Fatal]

NARRATIVE: CASE EVENT DATE: 20201127
